FAERS Safety Report 7916483-6 (Version None)
Quarter: 2011Q4

REPORT INFORMATION
  Report Type: 
  Country: None (occurrence: None)
  Receive Date: 20111114
  Receipt Date: 20111031
  Transmission Date: 20120403
  Serious: Yes (Other)
  Sender: FDA-Public Use
  Company Number: TPA2011A04304

PATIENT
  Age: 67 Year
  Sex: Male
  Weight: 128.8216 kg

DRUGS (1)
  1. ACTOS [Suspect]
     Indication: TYPE 2 DIABETES MELLITUS
     Dosage: 15 MG DAILY INCREASED TO 30 MG DAILY
     Dates: start: 20071102, end: 20110719

REACTIONS (2)
  - HAEMATURIA [None]
  - BLADDER CANCER [None]
